FAERS Safety Report 21650406 (Version 5)
Quarter: 2023Q2

REPORT INFORMATION
  Report Type: Spontaneous
  Country: US (occurrence: US)
  Receive Date: 20221128
  Receipt Date: 20230630
  Transmission Date: 20230721
  Serious: Yes (Other)
  Sender: FDA-Public Use
  Company Number: US-PFIZER INC-PV202200109922

PATIENT
  Age: 55 Year
  Sex: Female

DRUGS (1)
  1. XELJANZ XR [Suspect]
     Active Substance: TOFACITINIB CITRATE
     Indication: Rheumatoid arthritis
     Dosage: 11 MG, 1X/DAY
     Route: 048
     Dates: end: 202306

REACTIONS (11)
  - Abdominal infection [Unknown]
  - Product dose omission in error [Unknown]
  - Influenza [Unknown]
  - Blood glucose increased [Unknown]
  - Illness [Unknown]
  - Vitamin D decreased [Unknown]
  - Skin discolouration [Unknown]
  - Hypersomnia [Unknown]
  - Memory impairment [Unknown]
  - Blood cholesterol increased [Unknown]
  - Musculoskeletal stiffness [Unknown]

NARRATIVE: CASE EVENT DATE: 20220101
